FAERS Safety Report 4684654-0 (Version None)
Quarter: 2005Q2

REPORT INFORMATION
  Report Type: 
  Country: None (occurrence: None)
  Receive Date: 20050531
  Receipt Date: 20050211
  Transmission Date: 20051028
  Serious: Yes (Hospitalization)
  Sender: FDA-Public Use
  Company Number: US_0502111958

PATIENT
  Age: 41 Year
  Sex: Male
  Weight: 115 kg

DRUGS (5)
  1. ZYPREXA [Suspect]
     Indication: SCHIZOAFFECTIVE DISORDER
     Dates: start: 19960101, end: 19971101
  2. RISPERDAL [Concomitant]
  3. DEPAKOTE [Concomitant]
  4. SYNTHROID [Concomitant]
  5. ZOLOFT [Concomitant]

REACTIONS (3)
  - DIABETES MELLITUS [None]
  - FATIGUE [None]
  - SUICIDE ATTEMPT [None]
